FAERS Safety Report 13662314 (Version 1)
Quarter: 2017Q2

REPORT INFORMATION
  Report Type: Report from Study
  Country: US (occurrence: US)
  Receive Date: 20170617
  Receipt Date: 20170617
  Transmission Date: 20170830
  Serious: Yes (Death, Hospitalization)
  Sender: FDA-Public Use
  Company Number: US-TORRENT-00003081

PATIENT
  Age: 54 Year
  Sex: Male

DRUGS (7)
  1. DABIGATRAN [Suspect]
     Active Substance: DABIGATRAN
  2. BUPROPION. [Suspect]
     Active Substance: BUPROPION
  3. MIRTAZAPINE. [Suspect]
     Active Substance: MIRTAZAPINE
  4. CARVEDILOL. [Suspect]
     Active Substance: CARVEDILOL
  5. LISINOPRIL. [Suspect]
     Active Substance: LISINOPRIL
  6. FUROSEMIDE. [Suspect]
     Active Substance: FUROSEMIDE
  7. LAMOTRIGINE. [Suspect]
     Active Substance: LAMOTRIGINE

REACTIONS (3)
  - Toxicity to various agents [Fatal]
  - Intentional overdose [None]
  - Completed suicide [Fatal]
